FAERS Safety Report 4970497-7 (Version None)
Quarter: 2006Q1

REPORT INFORMATION
  Report Type: 
  Country: None (occurrence: None)
  Receive Date: 20060127
  Receipt Date: 20051228
  Transmission Date: 20060701
  Serious: No
  Sender: FDA-Public Use
  Company Number: 012055

PATIENT
  Age: 77 Year
  Sex: Female

DRUGS (18)
  1. PRIALT [Suspect]
     Indication: PAIN
     Dosage: SEE IMAGE
     Route: 039
     Dates: start: 20051101, end: 20051115
  2. PRIALT [Suspect]
     Indication: PAIN
     Dosage: SEE IMAGE
     Route: 039
     Dates: start: 20051115, end: 20051129
  3. PRIALT [Suspect]
     Indication: PAIN
     Dosage: SEE IMAGE
     Route: 039
     Dates: start: 20051129, end: 20051213
  4. PRIALT [Suspect]
     Indication: PAIN
     Dosage: SEE IMAGE
     Route: 039
     Dates: start: 20051213, end: 20051221
  5. ATENOLOL [Concomitant]
  6. PLAVIX [Concomitant]
  7. ASPIRIN [Concomitant]
  8. FOSAMAX [Concomitant]
  9. RANITIDINE [Concomitant]
  10. MVI (VITAMINS NOS) [Concomitant]
  11. CALCIUM (CALCIUM) [Concomitant]
  12. DETROL [Concomitant]
  13. DOXEPIN HCL [Concomitant]
  14. OXYCONTIN [Concomitant]
  15. OXYCODONE (OXYCODONE) [Concomitant]
  16. MIACALCIN [Concomitant]
  17. LASIX [Concomitant]
  18. SALINE (SODIUM CHLORIDE) [Concomitant]

REACTIONS (8)
  - BALANCE DISORDER [None]
  - DIZZINESS [None]
  - DYSPNOEA [None]
  - FATIGUE [None]
  - NAUSEA [None]
  - OEDEMA PERIPHERAL [None]
  - PAIN [None]
  - SEDATION [None]
